FAERS Safety Report 11128526 (Version 1)
Quarter: 2015Q2

REPORT INFORMATION
  Report Type: Spontaneous
  Country: SE (occurrence: SE)
  Receive Date: 20150521
  Receipt Date: 20150521
  Transmission Date: 20150821
  Serious: Yes (Death, Hospitalization)
  Sender: FDA-Public Use
  Company Number: SE-BANPHARM-20153911

PATIENT
  Age: 22 Month
  Sex: Male

DRUGS (2)
  1. ERYTHROMYCIN. [Concomitant]
     Active Substance: ERYTHROMYCIN
  2. IBUPROFEN UNKNOWN PRODUCT [Suspect]
     Active Substance: IBUPROFEN
     Indication: PYREXIA
     Dosage: NORMAL DOSE,

REACTIONS (7)
  - Jaundice [Not Recovered/Not Resolved]
  - Altered state of consciousness [Not Recovered/Not Resolved]
  - Idiosyncratic drug reaction [Fatal]
  - Diarrhoea [Unknown]
  - Acute hepatic failure [Fatal]
  - Seizure [Unknown]
  - Vomiting [Unknown]
